FAERS Safety Report 16873679 (Version 1)
Quarter: 2019Q4

REPORT INFORMATION
  Report Type: Spontaneous
  Country: US (occurrence: US)
  Receive Date: 20191001
  Receipt Date: 20191001
  Transmission Date: 20200122
  Serious: Yes (Other)
  Sender: FDA-Public Use
  Company Number: US-SCIEGEN PHARMACEUTICALS INC-2019SCILIT00274

PATIENT
  Age: 58 Year
  Sex: Male

DRUGS (6)
  1. QUETIAPINE. [Suspect]
     Active Substance: QUETIAPINE
  2. LAMOTRIGINE. [Concomitant]
     Active Substance: LAMOTRIGINE
  3. RITONAVIR. [Interacting]
     Active Substance: RITONAVIR
  4. DASABUVIR [Concomitant]
     Active Substance: DASABUVIR
  5. OMBITASVIR [Concomitant]
     Active Substance: OMBITASVIR
  6. PARITAPREVIR [Concomitant]
     Active Substance: PARITAPREVIR

REACTIONS (11)
  - Tremor [Unknown]
  - Acute kidney injury [Unknown]
  - Metabolic acidosis [Unknown]
  - Overdose [Unknown]
  - Drug interaction [Unknown]
  - Delirium [Unknown]
  - Electrocardiogram QT interval [Unknown]
  - Respiratory acidosis [Unknown]
  - Hypotension [Unknown]
  - Hypokalaemia [Unknown]
  - Tachycardia [Unknown]
